FAERS Safety Report 5160115-X (Version None)
Quarter: 2006Q4

REPORT INFORMATION
  Report Type: 
  Country: None (occurrence: None)
  Receive Date: 20061115
  Receipt Date: 20061107
  Transmission Date: 20070319
  Serious: Yes (Other)
  Sender: FDA-Public Use
  Company Number: CHPA2006US11397

PATIENT
  Age: 55 Year
  Sex: Female
  Weight: 61.2 kg

DRUGS (1)
  1. EXCEDRIN (MIGRAINE) [Suspect]
     Indication: ARTHRITIS
     Dosage: 8.0  TABLETS, QD, ORAL
     Route: 048
     Dates: start: 20050530, end: 20061107

REACTIONS (3)
  - DRUG ABUSER [None]
  - NO ADVERSE DRUG EFFECT [None]
  - OVERDOSE [None]
